FAERS Safety Report 9469997 (Version 3)
Quarter: 2014Q2

REPORT INFORMATION
  Report Type: Report from Study
  Country: US (occurrence: US)
  Receive Date: 20130822
  Receipt Date: 20140609
  Transmission Date: 20141212
  Serious: Yes (Other)
  Sender: FDA-Public Use
  Company Number: US-ALEXION PHARMACEUTICALS INC.-A201301965

PATIENT
  Sex: 0

DRUGS (4)
  1. SOLIRIS [Suspect]
     Indication: HAEMOLYTIC URAEMIC SYNDROME
     Dosage: UNK
     Route: 042
  2. SOLIRIS [Suspect]
     Dosage: 1200 MG, Q3W
     Route: 042
     Dates: start: 20130302
  3. SOLIRIS [Suspect]
     Dosage: 1200 MG, Q2W
     Route: 042
  4. 6-MP [Concomitant]
     Indication: IMMUNOSUPPRESSION
     Dosage: UNK,UNK
     Route: 065

REACTIONS (3)
  - Clavicle fracture [Unknown]
  - Complement factor decreased [Unknown]
  - Incorrect dose administered [Not Recovered/Not Resolved]
